FAERS Safety Report 8896560 (Version 1)
Quarter: 2012Q4

REPORT INFORMATION
  Report Type: 
  Country: US (occurrence: US)
  Receive Date: 20121108
  Receipt Date: 20121108
  Transmission Date: 20130627
  Serious: No
  Sender: FDA-Public Use
  Company Number: US-AMGEN-USASP2012028251

PATIENT
  Age: 68 Year
  Sex: Female

DRUGS (1)
  1. ENBREL [Suspect]
     Indication: DERMATOMYOSITIS
     Dosage: 50 mg, qwk
     Dates: start: 20120327, end: 20120424

REACTIONS (1)
  - Injection site pain [Recovered/Resolved]
